FAERS Safety Report 16979913 (Version 16)
Quarter: 2020Q3

REPORT INFORMATION
  Report Type: Report from Study
  Country: DO (occurrence: DO)
  Receive Date: 20191031
  Receipt Date: 20200801
  Transmission Date: 20201102
  Serious: Yes (Life-Threatening, Hospitalization, Other)
  Sender: FDA-Public Use
  Company Number: PHHY2019DO204284

PATIENT
  Age: 41 Year
  Sex: Female

DRUGS (4)
  1. GILENYA [Suspect]
     Active Substance: FINGOLIMOD HYDROCHLORIDE
     Indication: RELAPSING-REMITTING MULTIPLE SCLEROSIS
     Dosage: 0.5 MG
     Route: 065
  2. PREGABALIN. [Suspect]
     Active Substance: PREGABALIN
     Indication: PRODUCT USED FOR UNKNOWN INDICATION
     Dosage: 150 MG, UNK
     Route: 065
  3. PREGABALIN. [Suspect]
     Active Substance: PREGABALIN
     Dosage: 75 MG, UNK
     Route: 065
  4. GILENYA [Suspect]
     Active Substance: FINGOLIMOD HYDROCHLORIDE
     Dosage: 0.5 MG, QD
     Route: 048
     Dates: start: 20190828, end: 20191213

REACTIONS (70)
  - Eye pain [Not Recovered/Not Resolved]
  - Vision blurred [Not Recovered/Not Resolved]
  - Eye swelling [Unknown]
  - Muscle spasticity [Unknown]
  - Nystagmus [Unknown]
  - Eyelid disorder [Unknown]
  - Off label use [Not Recovered/Not Resolved]
  - Somnolence [Unknown]
  - Pain in extremity [Unknown]
  - Sleep disorder [Unknown]
  - Eye infection bacterial [Not Recovered/Not Resolved]
  - Vascular insufficiency [Not Recovered/Not Resolved]
  - Heart rate increased [Unknown]
  - Body temperature increased [Unknown]
  - Gait disturbance [Unknown]
  - Alopecia [Unknown]
  - Blood cholesterol increased [Unknown]
  - Diplopia [Unknown]
  - Balance disorder [Unknown]
  - Hiccups [Unknown]
  - Abdominal pain upper [Unknown]
  - White blood cell count decreased [Unknown]
  - Oedema [Unknown]
  - Speech disorder [Unknown]
  - Optic nerve disorder [Unknown]
  - Sensory loss [Unknown]
  - Eye pruritus [Not Recovered/Not Resolved]
  - Hydrocephalus [Unknown]
  - Full blood count decreased [Not Recovered/Not Resolved]
  - Injection site pruritus [Unknown]
  - Malaise [Unknown]
  - Constipation [Unknown]
  - Tinnitus [Unknown]
  - Oropharyngeal discomfort [Unknown]
  - Inflammation [Unknown]
  - Influenza [Unknown]
  - Chills [Unknown]
  - Cough [Unknown]
  - Eye inflammation [Not Recovered/Not Resolved]
  - Hordeolum [Not Recovered/Not Resolved]
  - Ocular hyperaemia [Not Recovered/Not Resolved]
  - Peripheral swelling [Unknown]
  - Limb discomfort [Unknown]
  - Muscle spasms [Unknown]
  - Asthenia [Unknown]
  - Dizziness [Unknown]
  - Dysphonia [Unknown]
  - Anaemia [Unknown]
  - Dry mouth [Unknown]
  - Blood pressure decreased [Unknown]
  - Muscle spasms [Not Recovered/Not Resolved]
  - Eye disorder [Unknown]
  - Paralysis [Unknown]
  - Oedema peripheral [Not Recovered/Not Resolved]
  - Feeling abnormal [Unknown]
  - Vomiting [Unknown]
  - Hypoaesthesia [Unknown]
  - Visual impairment [Unknown]
  - Gastric disorder [Unknown]
  - Uhthoff^s phenomenon [Unknown]
  - Blindness [Not Recovered/Not Resolved]
  - Feeling hot [Unknown]
  - Discomfort [Unknown]
  - Eye movement disorder [Not Recovered/Not Resolved]
  - Dysphagia [Unknown]
  - Diarrhoea [Unknown]
  - Nausea [Unknown]
  - Headache [Unknown]
  - Fatigue [Unknown]
  - Oedema [Unknown]

NARRATIVE: CASE EVENT DATE: 20191205
